FAERS Safety Report 15839714 (Version 1)
Quarter: 2019Q1

REPORT INFORMATION
  Report Type: Spontaneous
  Country: TR (occurrence: TR)
  Receive Date: 20190117
  Receipt Date: 20190117
  Transmission Date: 20190417
  Serious: Yes (Other)
  Sender: FDA-Public Use
  Company Number: PHHY2019TR005658

PATIENT
  Age: 39 Year
  Sex: Male
  Weight: 78 kg

DRUGS (1)
  1. ADALIMUMAB [Suspect]
     Active Substance: ADALIMUMAB
     Indication: BEHCET^S SYNDROME
     Route: 065

REACTIONS (2)
  - Product use in unapproved indication [Unknown]
  - Osteonecrosis [Unknown]
